FAERS Safety Report 7504205-2 (Version None)
Quarter: 2011Q2

REPORT INFORMATION
  Report Type: 
  Country: None (occurrence: None)
  Receive Date: 20110525
  Receipt Date: 20110518
  Transmission Date: 20111010
  Serious: Yes (Hospitalization, Other)
  Sender: FDA-Public Use
  Company Number: JP-PFIZER INC-2011080824

PATIENT
  Age: 59 Year
  Sex: Male
  Weight: 68.5 kg

DRUGS (8)
  1. LYRICA [Suspect]
     Dosage: 25 MG, 2X/DAY
  2. RETICOLAN [Concomitant]
     Indication: HYPOAESTHESIA
     Dosage: 1500 UG, A DAY
     Route: 048
     Dates: start: 20110101, end: 20110407
  3. OPAPROSMON [Suspect]
     Indication: HYPOAESTHESIA
     Dosage: 15 UG, A DAY
     Route: 048
     Dates: start: 20110101, end: 20110407
  4. NEUROTROPIN [Suspect]
     Indication: HYPOAESTHESIA
     Dosage: 12 UNITS A DAY
     Route: 048
     Dates: start: 20110101, end: 20110407
  5. REBAMIPIDE [Concomitant]
     Indication: PROPHYLAXIS AGAINST GASTROINTESTINAL ULCER
     Dosage: 300 MG, A DAY
     Route: 048
     Dates: start: 20110101, end: 20110407
  6. VERAPAMIL HCL [Concomitant]
     Dosage: UNK
  7. LYRICA [Suspect]
     Indication: HYPOAESTHESIA
     Dosage: 100MG DAILY
     Route: 048
     Dates: start: 20110406
  8. LANSOPRAZOLE [Concomitant]
     Indication: PROPHYLAXIS AGAINST GASTROINTESTINAL ULCER
     Dosage: 15 MG, A DAY
     Route: 048
     Dates: start: 20110101, end: 20110407

REACTIONS (3)
  - DUODENAL ULCER HAEMORRHAGE [None]
  - VOMITING [None]
  - DUODENAL ULCER [None]
